FAERS Safety Report 6982672-0 (Version None)
Quarter: 2010Q3

REPORT INFORMATION
  Report Type: 
  Country: None (occurrence: None)
  Receive Date: 20100909
  Receipt Date: 20100826
  Transmission Date: 20110219
  Serious: Yes (Hospitalization)
  Sender: FDA-Public Use
  Company Number: CTI_01231_2010

PATIENT
  Age: 75 Year
  Sex: Female

DRUGS (3)
  1. FACTIVE [Suspect]
     Indication: EAR INFECTION
     Dosage: (DF)
     Dates: start: 20100728
  2. ADVAIR DISKUS 100/50 [Concomitant]
  3. SALBUTAMOL [Concomitant]

REACTIONS (7)
  - DEEP VEIN THROMBOSIS [None]
  - DERMATITIS BULLOUS [None]
  - DIALYSIS [None]
  - MALAISE [None]
  - RENAL FAILURE ACUTE [None]
  - RETROPERITONEAL HAEMORRHAGE [None]
  - STEVENS-JOHNSON SYNDROME [None]
